FAERS Safety Report 4951584-6 (Version None)
Quarter: 2006Q1

REPORT INFORMATION
  Report Type: 
  Country: None (occurrence: None)
  Receive Date: 20060323
  Receipt Date: 20060313
  Transmission Date: 20060701
  Serious: Yes (Other)
  Sender: FDA-Public Use
  Company Number: PHMT2006CA00874

PATIENT
  Age: 24 Year
  Sex: Female

DRUGS (2)
  1. METOPROLOL [Suspect]
     Indication: MIGRAINE
     Dosage: 12.5 MG TID
     Dates: start: 20010101
  2. CELEXA [Concomitant]

REACTIONS (1)
  - ECZEMA [None]
